FAERS Safety Report 11915414 (Version 1)
Quarter: 2016Q1

REPORT INFORMATION
  Report Type: Spontaneous
  Country: US (occurrence: US)
  Receive Date: 20160114
  Receipt Date: 20160114
  Transmission Date: 20160526
  Serious: Yes (Hospitalization, Other)
  Sender: FDA-Public Use
  Company Number: US-AMGEN-USASP2016002483

PATIENT
  Age: 59 Year
  Sex: Female

DRUGS (4)
  1. ADRIAMYCIN [Concomitant]
     Active Substance: DOXORUBICIN HYDROCHLORIDE
     Indication: BREAST CANCER
     Dosage: UNK UNK, EVERY 2 WEEKS
  2. NEULASTA [Suspect]
     Active Substance: PEGFILGRASTIM
     Indication: BREAST CANCER
     Dosage: UNK UNK, UNK
     Route: 065
  3. CYTOXAN [Concomitant]
     Active Substance: CYCLOPHOSPHAMIDE
     Dosage: UNK UNK, EVERY 2 WEEKS
  4. DEXAMETHASONE. [Concomitant]
     Active Substance: DEXAMETHASONE
     Indication: BREAST CANCER
     Dosage: UNK

REACTIONS (9)
  - Neutropenia [Not Recovered/Not Resolved]
  - Stomatitis [Not Recovered/Not Resolved]
  - Oral mucosal discolouration [Unknown]
  - Dehydration [Not Recovered/Not Resolved]
  - Dysphagia [Unknown]
  - Night sweats [Unknown]
  - Feeling abnormal [Not Recovered/Not Resolved]
  - Oral discomfort [Unknown]
  - Tonsillar inflammation [Unknown]

NARRATIVE: CASE EVENT DATE: 201601
